FAERS Safety Report 22390169 (Version 1)
Quarter: 2023Q2

REPORT INFORMATION
  Report Type: Spontaneous
  Country: DE (occurrence: DE)
  Receive Date: 20230531
  Receipt Date: 20230531
  Transmission Date: 20230721
  Serious: Yes (Death, Hospitalization, Other)
  Sender: FDA-Public Use
  Company Number: DE-002147023-NVSC2023DE124858

PATIENT
  Sex: Male

DRUGS (1)
  1. ENTRESTO [Suspect]
     Active Substance: SACUBITRIL\VALSARTAN
     Indication: Right ventricular failure
     Dosage: UNK
     Route: 065

REACTIONS (5)
  - General physical health deterioration [Fatal]
  - Oedema peripheral [Not Recovered/Not Resolved]
  - Ascites [Unknown]
  - Renal impairment [Not Recovered/Not Resolved]
  - Hypotension [Unknown]
